FAERS Safety Report 17958547 (Version 7)
Quarter: 2024Q4

REPORT INFORMATION
  Report Type: Report from Study
  Country: US (occurrence: US)
  Receive Date: 20200630
  Receipt Date: 20241112
  Transmission Date: 20250115
  Serious: Yes (Life-Threatening, Hospitalization, Other)
  Sender: ABBVIE
  Company Number: US-ABBVIE-20K-163-3458262-00

PATIENT
  Age: 20 Year
  Sex: Male
  Weight: 59.6 kg

DRUGS (12)
  1. HUMIRA [Suspect]
     Active Substance: ADALIMUMAB
     Indication: Crohn^s disease
     Route: 058
     Dates: start: 20170222, end: 20180102
  2. HUMIRA [Suspect]
     Active Substance: ADALIMUMAB
     Route: 058
     Dates: start: 20180103, end: 20200619
  3. METHOTREXATE [Suspect]
     Active Substance: METHOTREXATE
     Indication: Crohn^s disease
     Route: 048
     Dates: start: 20180802, end: 20200622
  4. LIALDA [Concomitant]
     Active Substance: MESALAMINE
     Indication: Crohn^s disease
     Route: 048
     Dates: start: 2015, end: 20190204
  5. LIALDA [Concomitant]
     Active Substance: MESALAMINE
     Indication: Crohn^s disease
     Dosage: TIME INTERVAL: 0.33333333 DAYS
     Route: 048
     Dates: start: 20190204, end: 20200622
  6. ERGOCALCIFEROL, VITAMIN D2 [Concomitant]
     Indication: Vitamin supplementation
     Dosage: DOSAGE: 1 DOSAGE FORM
     Route: 048
     Dates: start: 2014, end: 20180423
  7. ERGOCALCIFEROL, VITAMIN D2 [Concomitant]
     Indication: Vitamin supplementation
     Route: 048
     Dates: start: 20180423
  8. NIACINAMIDE [Concomitant]
     Active Substance: NIACINAMIDE
     Indication: Photosensitivity reaction
     Route: 048
     Dates: start: 2016
  9. FOLIC ACID [Concomitant]
     Active Substance: FOLIC ACID
     Indication: Vitamin supplementation
     Route: 048
     Dates: start: 20180312, end: 20200621
  10. HYDROCORTISONE [Concomitant]
     Active Substance: HYDROCORTISONE
     Indication: Seborrhoeic dermatitis
     Dosage: CREAM (ANTI-INFLAMMATORY)
     Route: 061
     Dates: start: 20180402
  11. BENZOYL PEROXIDE [Concomitant]
     Active Substance: BENZOYL PEROXIDE
     Indication: Acne
     Route: 061
     Dates: start: 20180402
  12. CALCIUM [Concomitant]
     Active Substance: CALCIUM
     Indication: Mineral supplementation
     Route: 048
     Dates: start: 2018, end: 20200621

REACTIONS (1)
  - Lower gastrointestinal haemorrhage [Recovered/Resolved]

NARRATIVE: CASE EVENT DATE: 20200621
